FAERS Safety Report 17263347 (Version 1)
Quarter: 2020Q1

REPORT INFORMATION
  Report Type: Spontaneous
  Country: US (occurrence: US)
  Receive Date: 20200112
  Receipt Date: 20200112
  Transmission Date: 20200409
  Serious: Yes (Other)
  Sender: FDA-Public Use
  Company Number: None

PATIENT
  Age: 32 Year
  Sex: Female
  Weight: 67.5 kg

DRUGS (8)
  1. PROBIOTIC JARRODOPHILUS [Concomitant]
  2. LAMICTAL [Concomitant]
     Active Substance: LAMOTRIGINE
  3. GABAPENTIN. [Concomitant]
     Active Substance: GABAPENTIN
  4. NYSTATIN. [Concomitant]
     Active Substance: NYSTATIN
  5. KLONOPIN [Concomitant]
     Active Substance: CLONAZEPAM
  6. ZANTAC MAXIMUM STRENGTH 150 COOL MINT [Suspect]
     Active Substance: RANITIDINE HYDROCHLORIDE
     Indication: DYSPEPSIA
     Dates: start: 20190430, end: 20190609
  7. BORIC ACID [Concomitant]
     Active Substance: BORIC ACID
  8. SPIRONOLACTONE. [Concomitant]
     Active Substance: SPIRONOLACTONE

REACTIONS (4)
  - Dyspepsia [None]
  - Dry mouth [None]
  - Inadequate diet [None]
  - Abdominal pain upper [None]

NARRATIVE: CASE EVENT DATE: 20190430
